FAERS Safety Report 8119558-4 (Version None)
Quarter: 2012Q1

REPORT INFORMATION
  Report Type: 
  Country: None (occurrence: None)
  Receive Date: 20120207
  Receipt Date: 20120131
  Transmission Date: 20120608
  Serious: Yes (Other)
  Sender: FDA-Public Use
  Company Number: PHHY2011CA00533

PATIENT
  Sex: Female

DRUGS (2)
  1. ZOLEDRONOC ACID [Suspect]
     Indication: OSTEOPOROSIS
     Dosage: UNK
     Route: 042
     Dates: start: 20100223
  2. ZOLEDRONOC ACID [Suspect]
     Dosage: UNK
     Route: 042
     Dates: start: 20110223

REACTIONS (7)
  - HYPOKINESIA [None]
  - RIB FRACTURE [None]
  - BACK PAIN [None]
  - HERPES ZOSTER [None]
  - SCAPULA FRACTURE [None]
  - PAIN [None]
  - MOBILITY DECREASED [None]
